FAERS Safety Report 22366316 (Version 1)
Quarter: 2023Q2

REPORT INFORMATION
  Report Type: Spontaneous
  Country: CA (occurrence: CA)
  Receive Date: 20230525
  Receipt Date: 20230525
  Transmission Date: 20230722
  Serious: Yes (Other)
  Sender: FDA-Public Use
  Company Number: CA-SUN PHARMACEUTICAL INDUSTRIES LTD-2023R1-387129

PATIENT
  Age: 43 Year
  Sex: Male

DRUGS (7)
  1. BUPROPION [Suspect]
     Active Substance: BUPROPION
     Indication: Bipolar disorder
     Dosage: 150 MILLIGRAM, QD
     Route: 065
  2. CLONAZEPAM [Suspect]
     Active Substance: CLONAZEPAM
     Indication: Bipolar disorder
     Dosage: 1 MILLIGRAM AM
     Route: 065
  3. CLONAZEPAM [Suspect]
     Active Substance: CLONAZEPAM
     Dosage: 3 MILLIGRAM, DAILY
     Route: 065
  4. QUETIAPINE [Suspect]
     Active Substance: QUETIAPINE
     Indication: Bipolar disorder
     Dosage: 300 MILLIGRAM, HS (XR)
     Route: 065
  5. QUETIAPINE [Suspect]
     Active Substance: QUETIAPINE
     Dosage: 50 MILLIGRAM, QD, PRN (25)
     Route: 065
  6. VENLAFAXINE [Suspect]
     Active Substance: VENLAFAXINE HYDROCHLORIDE
     Indication: Bipolar disorder
     Dosage: 262.5 MILLIGRAM, QD
     Route: 065
  7. ZOLPIDEM [Suspect]
     Active Substance: ZOLPIDEM TARTRATE
     Indication: Bipolar disorder
     Dosage: 10 MILLIGRAM, HS
     Route: 065

REACTIONS (1)
  - Drug resistance [Unknown]
